FAERS Safety Report 10159342 (Version 1)
Quarter: 2014Q2

REPORT INFORMATION
  Report Type: Spontaneous
  Country: US (occurrence: None)
  Receive Date: 20140507
  Receipt Date: 20140507
  Transmission Date: 20141212
  Serious: Yes (Hospitalization)
  Sender: FDA-Public Use
  Company Number: None

PATIENT
  Age: 43 Year
  Sex: Female

DRUGS (1)
  1. TECFIDERA [Suspect]
     Indication: MULTIPLE SCLEROSIS
     Dosage: SINGLE DOSE OF 120MG
     Route: 048

REACTIONS (7)
  - Flushing [None]
  - Fatigue [None]
  - Pain [None]
  - Paraesthesia [None]
  - Blood pressure [None]
  - Gait disturbance [None]
  - Impaired work ability [None]
